FAERS Safety Report 19782668 (Version 2)
Quarter: 2021Q3

REPORT INFORMATION
  Report Type: Spontaneous
  Country: JP (occurrence: JP)
  Receive Date: 20210902
  Receipt Date: 20210928
  Transmission Date: 20211014
  Serious: Yes (Other)
  Sender: FDA-Public Use
  Company Number: JP-BRISTOL-MYERS SQUIBB COMPANY-BMS-2021-060315

PATIENT
  Age: 58 Year
  Sex: Male

DRUGS (2)
  1. OPDIVO [Suspect]
     Active Substance: NIVOLUMAB
     Indication: GASTRIC CANCER
     Dosage: 240 MILLIGRAM, Q2WK
     Route: 041
     Dates: start: 202104, end: 202106
  2. ANAMORELIN. [Suspect]
     Active Substance: ANAMORELIN
     Indication: CACHEXIA
     Dosage: UNK
     Route: 048

REACTIONS (2)
  - Jaundice cholestatic [Recovered/Resolved]
  - Hepatic function abnormal [Recovering/Resolving]

NARRATIVE: CASE EVENT DATE: 202106
